FAERS Safety Report 17690664 (Version 1)
Quarter: 2020Q2

REPORT INFORMATION
  Report Type: Report from Study
  Country: IT (occurrence: IT)
  Receive Date: 20200421
  Receipt Date: 20200421
  Transmission Date: 20200714
  Serious: Yes (Hospitalization)
  Sender: FDA-Public Use
  Company Number: IT-TEVA-2020-IT-1225852

PATIENT
  Age: 88 Year
  Sex: Female

DRUGS (7)
  1. EDOXABAN [Interacting]
     Active Substance: EDOXABAN TOSYLATE
     Indication: ATRIAL FIBRILLATION
     Dosage: 30 MG
     Route: 048
     Dates: end: 20200129
  2. LASIX [Concomitant]
     Active Substance: FUROSEMIDE
     Dosage: 25 MG
     Route: 048
  3. CORDARONE [Concomitant]
     Active Substance: AMIODARONE HYDROCHLORIDE
     Dosage: 200 MG
     Route: 048
  4. ESOMEPRAZOLO EG 20 MG CAPSULE RIGIDE GASTRORESISTENTI [Concomitant]
     Dosage: 20 MG
     Route: 048
  5. ZYLORIC 300 MG COMPRESSE [Concomitant]
     Active Substance: ALLOPURINOL
     Dosage: 150 MG
     Route: 048
  6. CONGESCOR 2,5 MG, COMPRESSE FILM-RIVESTITE [Concomitant]
     Dosage: 2.5 MG
     Route: 048
  7. SIMVASTATIN. [Suspect]
     Active Substance: SIMVASTATIN
     Indication: HYPERCHOLESTEROLAEMIA
     Dosage: 20 MG
     Route: 048
     Dates: end: 20200129

REACTIONS (6)
  - Aspartate aminotransferase increased [Recovering/Resolving]
  - Blood creatinine increased [Recovering/Resolving]
  - Blood creatine phosphokinase increased [Recovering/Resolving]
  - Drug interaction [Recovering/Resolving]
  - Rhabdomyolysis [Recovering/Resolving]
  - Alanine aminotransferase increased [Recovering/Resolving]

NARRATIVE: CASE EVENT DATE: 20200127
